FAERS Safety Report 24677732 (Version 1)
Quarter: 2024Q4

REPORT INFORMATION
  Report Type: Spontaneous
  Country: DK (occurrence: DK)
  Receive Date: 20241129
  Receipt Date: 20241129
  Transmission Date: 20250114
  Serious: Yes (Hospitalization, Other)
  Sender: NOVAST LABORATORIES LTD
  Company Number: DK-NOVAST LABORATORIES INC.-2024NOV000326

PATIENT
  Age: 76 Year
  Sex: Female

DRUGS (1)
  1. ZOLEDRONIC ACID [Suspect]
     Active Substance: ZOLEDRONIC ACID
     Indication: Osteoporosis
     Dosage: ANNUAL 5 MG
     Route: 042

REACTIONS (2)
  - Acute kidney injury [Recovering/Resolving]
  - Product use in unapproved indication [Unknown]
